FAERS Safety Report 14843100 (Version 1)
Quarter: 2018Q2

REPORT INFORMATION
  Report Type: Spontaneous
  Country: GB (occurrence: GB)
  Receive Date: 20180503
  Receipt Date: 20180503
  Transmission Date: 20180711
  Serious: Yes (Other)
  Sender: FDA-Public Use
  Company Number: PHHY2017GB202901

PATIENT

DRUGS (2)
  1. PALBOCICLIB ISETHIONATE [Interacting]
     Active Substance: PALBOCICLIB ISETHIONATE
     Indication: BREAST CANCER METASTATIC
     Dosage: 75 MG, UNK
     Route: 065
  2. CLARITHROMYCIN. [Suspect]
     Active Substance: CLARITHROMYCIN
     Indication: PRODUCT USED FOR UNKNOWN INDICATION
     Route: 065

REACTIONS (2)
  - Labelled drug-drug interaction medication error [Unknown]
  - Neutropenia [Recovered/Resolved]
